FAERS Safety Report 10311359 (Version 1)
Quarter: 2014Q3

REPORT INFORMATION
  Report Type: Spontaneous
  Country: US (occurrence: US)
  Receive Date: 20140717
  Receipt Date: 20140717
  Transmission Date: 20150326
  Serious: Yes (Death)
  Sender: FDA-Public Use
  Company Number: US-PFIZER INC-2014199645

PATIENT
  Age: 92 Year
  Sex: Male

DRUGS (7)
  1. LANOXIN [Concomitant]
     Active Substance: DIGOXIN
     Dosage: UNK
  2. BOOST [Concomitant]
     Dosage: UNK
  3. ZOCOR [Suspect]
     Active Substance: SIMVASTATIN
     Dosage: UNK
  4. ZESTRIL [Concomitant]
     Active Substance: LISINOPRIL
     Dosage: UNK
  5. CALCIUM WITH VITAMIN D [Concomitant]
     Active Substance: CALCIUM\VITAMIN D
     Dosage: UNK
  6. NORPACE [Suspect]
     Active Substance: DISOPYRAMIDE PHOSPHATE
     Dosage: UNK
  7. PAZOPANIB [Interacting]
     Active Substance: PAZOPANIB
     Indication: RENAL CANCER
     Dosage: 400 MG, DAILY
     Route: 048
     Dates: start: 20140601

REACTIONS (3)
  - Death [Fatal]
  - Labelled drug-drug interaction medication error [Fatal]
  - Drug interaction [Fatal]
